FAERS Safety Report 18081924 (Version 1)
Quarter: 2020Q3

REPORT INFORMATION
  Report Type: Report from Study
  Country: US (occurrence: US)
  Receive Date: 20200729
  Receipt Date: 20200729
  Transmission Date: 20201103
  Serious: Yes (Other)
  Sender: FDA-Public Use
  Company Number: US-AUROBINDO-AUR-APL-2020-036125

PATIENT

DRUGS (1)
  1. EVOMELA [Suspect]
     Active Substance: MELPHALAN HYDROCHLORIDE
     Indication: RENAL AMYLOIDOSIS
     Dosage: UNK
     Route: 065

REACTIONS (21)
  - Blood alkaline phosphatase [Recovered/Resolved]
  - Oedema peripheral [Not Recovered/Not Resolved]
  - Hypophosphataemia [Recovered/Resolved]
  - Lymphocyte count [Recovered/Resolved]
  - White blood cell count [Recovered/Resolved]
  - Diarrhoea [Recovered/Resolved]
  - Hypoalbuminaemia [Recovered/Resolved]
  - Vomiting [Recovered/Resolved]
  - Hyperuricaemia [Recovered/Resolved]
  - Atrial fibrillation [Recovered/Resolved]
  - Constipation [Not Recovered/Not Resolved]
  - Hypocalcaemia [Recovered/Resolved]
  - Nausea [Recovered/Resolved]
  - Chronic kidney disease [Recovered/Resolved]
  - Anaemia [Not Recovered/Not Resolved]
  - Dysgeusia [Recovered/Resolved]
  - Platelet count decreased [Recovered/Resolved]
  - Fatigue [Recovered/Resolved]
  - Insomnia [Not Recovered/Not Resolved]
  - Hyponatraemia [Recovered/Resolved]
  - Blood creatinine increased [Not Recovered/Not Resolved]

NARRATIVE: CASE EVENT DATE: 20181009
